FAERS Safety Report 8822090 (Version 2)
Quarter: 2014Q3

REPORT INFORMATION
  Report Type: Spontaneous
  Country: US (occurrence: US)
  Receive Date: 20121003
  Receipt Date: 20140716
  Transmission Date: 20150326
  Serious: Yes (Life-Threatening)
  Sender: FDA-Public Use
  Company Number: US-VERTEX PHARMACEUTICAL INC.-AE-2012-012041

PATIENT
  Age: 56 Year
  Sex: Male
  Weight: 66 kg

DRUGS (7)
  1. ATENOLOL. [Concomitant]
     Active Substance: ATENOLOL
     Dosage: 50 MG, UNK
     Route: 048
  2. PEGASYS [Suspect]
     Active Substance: PEGINTERFERON ALFA-2A
     Indication: HEPATITIS C
     Dosage: 180 ?G, QW
     Route: 058
     Dates: start: 20120222, end: 201205
  3. INCIVEK [Suspect]
     Active Substance: TELAPREVIR
     Indication: HEPATITIS C
     Dosage: 750 MG, TID
     Route: 048
     Dates: start: 20120222, end: 201205
  4. TRAMADOL [Concomitant]
     Active Substance: TRAMADOL
     Dosage: 50 MG, UNK
     Route: 048
  5. VITAMINS [Concomitant]
     Active Substance: VITAMINS
  6. RIBASPHERE [Suspect]
     Active Substance: RIBAVIRIN
     Indication: HEPATITIS C
     Dosage: 400MG AM, 600MG PM
     Route: 065
     Dates: start: 20120222
  7. RIBASPHERE [Suspect]
     Active Substance: RIBAVIRIN
     Dosage: 200 AM, 300 PM
     Route: 065
     Dates: end: 201205

REACTIONS (23)
  - Gait disturbance [Not Recovered/Not Resolved]
  - Pharyngeal oedema [Unknown]
  - Dysgeusia [Unknown]
  - Rash [Not Recovered/Not Resolved]
  - Pruritus [Not Recovered/Not Resolved]
  - Muscle spasms [Unknown]
  - Incoherent [Unknown]
  - Dyspnoea [Not Recovered/Not Resolved]
  - Swelling [Unknown]
  - Swollen tongue [Not Recovered/Not Resolved]
  - Swelling face [Not Recovered/Not Resolved]
  - Insomnia [Unknown]
  - Scar [Not Recovered/Not Resolved]
  - Depression [Unknown]
  - Vision blurred [Unknown]
  - Skin lesion [Not Recovered/Not Resolved]
  - Headache [Unknown]
  - Alopecia [Unknown]
  - Blister [Not Recovered/Not Resolved]
  - Stevens-Johnson syndrome [Recovered/Resolved]
  - Stomatitis [Not Recovered/Not Resolved]
  - Lip swelling [Unknown]
  - Pain in extremity [Unknown]

NARRATIVE: CASE EVENT DATE: 201203
